FAERS Safety Report 9913407 (Version 1)
Quarter: 2014Q1

REPORT INFORMATION
  Report Type: Spontaneous
  Country: SE (occurrence: None)
  Receive Date: 20140212
  Receipt Date: 20140212
  Transmission Date: 20141002
  Serious: Yes (Death)
  Sender: FDA-Public Use
  Company Number: 2014P1001029

PATIENT
  Age: 40 Year
  Sex: Female

DRUGS (9)
  1. ALPRAZOLAM [Suspect]
  2. CODEINE [Suspect]
  3. MORPHINE [Suspect]
  4. NITRAZEPAM [Suspect]
  5. PARACETAMOL [Suspect]
  6. ZOPICLONE [Suspect]
  7. QUETIAPINE [Suspect]
  8. VENLAFAXINE [Suspect]
  9. ETHANOL [Suspect]

REACTIONS (1)
  - Poisoning [None]
